FAERS Safety Report 23657599 (Version 2)
Quarter: 2024Q2

REPORT INFORMATION
  Report Type: Spontaneous
  Country: IE (occurrence: IE)
  Receive Date: 20240321
  Receipt Date: 20240409
  Transmission Date: 20240716
  Serious: Yes (Other)
  Sender: FDA-Public Use
  Company Number: None

PATIENT
  Age: 39 Year
  Sex: Male

DRUGS (6)
  1. OLANZAPINE [Suspect]
     Active Substance: OLANZAPINE
     Indication: Dissociation
     Dosage: DAILY DOSE: 2.5 MILLIGRAM
     Route: 048
     Dates: start: 2020, end: 2022
  2. OLANZAPINE [Suspect]
     Active Substance: OLANZAPINE
     Indication: Anxiety
     Dosage: DAILY DOSE: 2.5 MILLIGRAM
     Route: 048
     Dates: start: 2020, end: 2022
  3. OLANZAPINE [Suspect]
     Active Substance: OLANZAPINE
     Indication: Depression
     Dosage: DAILY DOSE: 2.5 MILLIGRAM
     Route: 048
     Dates: start: 2020, end: 2022
  4. OLANZAPINE [Suspect]
     Active Substance: OLANZAPINE
     Indication: Dissociation
     Dosage: THE PATIENT WOULD BE OFF OLANZAPINE FOR A YEAR IN OCT/2023
     Dates: end: 202310
  5. OLANZAPINE [Suspect]
     Active Substance: OLANZAPINE
     Indication: Anxiety
     Dosage: THE PATIENT WOULD BE OFF OLANZAPINE FOR A YEAR IN OCT/2023
     Dates: end: 202310
  6. OLANZAPINE [Suspect]
     Active Substance: OLANZAPINE
     Indication: Depression
     Dosage: THE PATIENT WOULD BE OFF OLANZAPINE FOR A YEAR IN OCT/2023
     Dates: end: 202310

REACTIONS (7)
  - Suicidal ideation [Recovered/Resolved]
  - Injury [Unknown]
  - Drug withdrawal syndrome [Unknown]
  - Alcohol intolerance [Unknown]
  - Weight increased [Recovering/Resolving]
  - Hypercholesterolaemia [Unknown]
  - Gastrooesophageal reflux disease [Unknown]

NARRATIVE: CASE EVENT DATE: 20220101
